FAERS Safety Report 10481173 (Version 1)
Quarter: 2014Q3

REPORT INFORMATION
  Report Type: Spontaneous
  Country: US (occurrence: None)
  Receive Date: 20140908
  Receipt Date: 20140908
  Transmission Date: 20150326
  Serious: Yes (Other)
  Sender: FDA-Public Use
  Company Number: 387809

PATIENT
  Age: 52 Year
  Sex: Male
  Weight: 118.8 kg

DRUGS (15)
  1. VITAMIN D3 [Concomitant]
     Active Substance: CHOLECALCIFEROL
  2. VOLTAREN /00372301/ (DICLOFENAC) [Concomitant]
  3. SINGULAIR (MONTELUKAST SODIUM) [Concomitant]
  4. ATIVAN [Concomitant]
     Active Substance: LORAZEPAM
  5. VICTOZA [Suspect]
     Active Substance: LIRAGLUTIDE
     Indication: TYPE 2 DIABETES MELLITUS
     Route: 058
     Dates: start: 20130729, end: 20130821
  6. NOVOLOG [Concomitant]
     Active Substance: INSULIN ASPART
  7. GLUCOPHAGE [Concomitant]
     Active Substance: METFORMIN HYDROCHLORIDE
  8. LANTUS [Concomitant]
     Active Substance: INSULIN GLARGINE
  9. TEKTURNA [Concomitant]
     Active Substance: ALISKIREN HEMIFUMARATE
  10. TRICOR /00090101/ (ADENOSINE) [Concomitant]
  11. ACTOS [Concomitant]
     Active Substance: PIOGLITAZONE HYDROCHLORIDE
  12. PRAVACHOL (PRAVASTATIN SODIUM) [Concomitant]
  13. COMBIVENT (IPRATROPIUM BROMIDE, SALBUTAMOL SULFATE) [Concomitant]
  14. PROTONIX [Concomitant]
     Active Substance: PANTOPRAZOLE SODIUM
  15. TRAMADOL [Concomitant]
     Active Substance: TRAMADOL

REACTIONS (2)
  - Chest pain [None]
  - Pancreatitis [None]

NARRATIVE: CASE EVENT DATE: 20130812
